FAERS Safety Report 6115556-0 (Version None)
Quarter: 2009Q1

REPORT INFORMATION
  Report Type: 
  Country: None (occurrence: None)
  Receive Date: 20090313
  Receipt Date: 20090305
  Transmission Date: 20090719
  Serious: Yes (Other)
  Sender: FDA-Public Use
  Company Number: PHEH2009US02397

PATIENT
  Age: 17 Year
  Sex: Male

DRUGS (1)
  1. EXJADE [Suspect]
     Dosage: 20 MG/KG (125 MG)

REACTIONS (2)
  - ASCITES [None]
  - HEPATIC ENZYME INCREASED [None]
